FAERS Safety Report 25401098 (Version 2)
Quarter: 2025Q2

REPORT INFORMATION
  Report Type: Report from Study
  Country: US (occurrence: US)
  Receive Date: 20250605
  Receipt Date: 20250617
  Transmission Date: 20250716
  Serious: No
  Sender: MALLINCKRODT
  Company Number: US-MALLINCKRODT-MNK202503224

PATIENT
  Age: 31 Year
  Sex: Female

DRUGS (1)
  1. CORTICOTROPIN [Suspect]
     Active Substance: CORTICOTROPIN
     Indication: Uveitis
     Route: 058
     Dates: start: 20250518

REACTIONS (7)
  - Fear of injection [Unknown]
  - Vision blurred [Unknown]
  - Injection site bruising [Recovering/Resolving]
  - Injection site erythema [Unknown]
  - Injection site haemorrhage [Unknown]
  - Injection site swelling [Recovering/Resolving]
  - Injection site discolouration [Unknown]

NARRATIVE: CASE EVENT DATE: 20250101
